FAERS Safety Report 11862857 (Version 3)
Quarter: 2016Q1

REPORT INFORMATION
  Report Type: Spontaneous
  Country: US (occurrence: US)
  Receive Date: 20151223
  Receipt Date: 20160212
  Transmission Date: 20160526
  Serious: Yes (Hospitalization)
  Sender: FDA-Public Use
  Company Number: US-BEH-2015056854

PATIENT
  Age: 60 Year
  Sex: Female
  Weight: 90 kg

DRUGS (41)
  1. PERCOCET [Concomitant]
     Active Substance: ACETAMINOPHEN\OXYCODONE HYDROCHLORIDE
  2. HYDROCHLORTHIAZIDE [Concomitant]
     Active Substance: HYDROCHLOROTHIAZIDE
  3. METOCLOPRAMIDE. [Concomitant]
     Active Substance: METOCLOPRAMIDE
  4. ALEVE [Concomitant]
     Active Substance: NAPROXEN SODIUM
  5. ADVAIR HFA [Concomitant]
     Active Substance: FLUTICASONE PROPIONATE\SALMETEROL XINAFOATE
  6. LAMICTAL [Concomitant]
     Active Substance: LAMOTRIGINE
  7. PREDNISONE. [Concomitant]
     Active Substance: PREDNISONE
  8. KLOR-CON [Concomitant]
     Active Substance: POTASSIUM CHLORIDE
  9. PATANASE [Concomitant]
     Active Substance: OLOPATADINE HYDROCHLORIDE
  10. ZOMIG [Concomitant]
     Active Substance: ZOLMITRIPTAN
  11. HIZENTRA [Suspect]
     Active Substance: HUMAN IMMUNOGLOBULIN G
     Dosage: 1 GM 5 ML VIAL
     Route: 058
  12. HIZENTRA [Suspect]
     Active Substance: HUMAN IMMUNOGLOBULIN G
     Indication: HYPOGAMMAGLOBULINAEMIA
     Dosage: 1 GM 5 ML VIAL
     Route: 058
     Dates: start: 20110322
  13. FLUTICASONE [Concomitant]
     Active Substance: FLUTICASONE\FLUTICASONE PROPIONATE
  14. TOPAMAX [Concomitant]
     Active Substance: TOPIRAMATE
  15. VERAMYST [Concomitant]
     Active Substance: FLUTICASONE FUROATE
  16. LASIX [Concomitant]
     Active Substance: FUROSEMIDE
  17. METOPROLOL SUCCINATE. [Concomitant]
     Active Substance: METOPROLOL SUCCINATE
  18. RANITIDINE [Concomitant]
     Active Substance: RANITIDINE\RANITIDINE HYDROCHLORIDE
  19. DOXYCYCLINE. [Concomitant]
     Active Substance: DOXYCYCLINE
  20. THEO-DUR [Concomitant]
     Active Substance: THEOPHYLLINE ANHYDROUS
  21. TYLENOL WITH CODEINE [Concomitant]
     Active Substance: ACETAMINOPHEN\CODEINE PHOSPHATE
  22. XANAX [Concomitant]
     Active Substance: ALPRAZOLAM
  23. TRILEPTAL [Concomitant]
     Active Substance: OXCARBAZEPINE
  24. DIOVAN [Concomitant]
     Active Substance: VALSARTAN
  25. VERAPAMIL [Concomitant]
     Active Substance: VERAPAMIL HYDROCHLORIDE
  26. PAXIL [Concomitant]
     Active Substance: PAROXETINE HYDROCHLORIDE
  27. ALBUTEROL. [Concomitant]
     Active Substance: ALBUTEROL
  28. MAXALT [Concomitant]
     Active Substance: RIZATRIPTAN BENZOATE
  29. AMLODIPINE BESYLATE. [Concomitant]
     Active Substance: AMLODIPINE BESYLATE
  30. LOVENOX [Concomitant]
     Active Substance: ENOXAPARIN SODIUM
  31. HYDROCORTISONE. [Concomitant]
     Active Substance: HYDROCORTISONE
  32. PRILOSEC [Concomitant]
     Active Substance: OMEPRAZOLE MAGNESIUM
  33. HIZENTRA [Suspect]
     Active Substance: HUMAN IMMUNOGLOBULIN G
     Dosage: 3 GM 20 ML VIALS
     Route: 058
  34. TYLENOL [Concomitant]
     Active Substance: ACETAMINOPHEN
  35. HIZENTRA [Suspect]
     Active Substance: HUMAN IMMUNOGLOBULIN G
     Indication: HYPOGAMMAGLOBULINAEMIA
     Dosage: 4 GM 20 ML VIAL
     Route: 058
     Dates: start: 20110322
  36. DIPHENHYDRAMINE. [Concomitant]
     Active Substance: DIPHENHYDRAMINE
  37. EPIPEN [Concomitant]
     Active Substance: EPINEPHRINE
  38. LMX [Concomitant]
     Active Substance: LIDOCAINE
  39. POLYSPORIN [Concomitant]
     Active Substance: BACITRACIN ZINC\POLYMYXIN B SULFATE
  40. ENTOCORT [Concomitant]
     Active Substance: BUDESONIDE
  41. SINGULAIR [Concomitant]
     Active Substance: MONTELUKAST SODIUM

REACTIONS (4)
  - Seizure [Unknown]
  - Cholecystectomy [Unknown]
  - Seizure [Unknown]
  - Gastroenteritis viral [Unknown]

NARRATIVE: CASE EVENT DATE: 201510
